FAERS Safety Report 5269800-2 (Version None)
Quarter: 2007Q1

REPORT INFORMATION
  Report Type: 
  Country: None (occurrence: None)
  Receive Date: 20061218
  Receipt Date: 20060919
  Transmission Date: 20070707
  Serious: Yes (Hospitalization)
  Sender: FDA-Public Use
  Company Number: US200609004780

PATIENT
  Age: 53 Year
  Sex: Female

DRUGS (2)
  1. HUMALOG [Suspect]
     Indication: DIABETES MELLITUS
     Dates: start: 19980101
  2. LANTUS [Concomitant]

REACTIONS (2)
  - BLOOD GLUCOSE INCREASED [None]
  - DRUG INEFFECTIVE [None]
